FAERS Safety Report 9222421 (Version 1)
Quarter: 2013Q2

REPORT INFORMATION
  Report Type: Spontaneous
  Country: US (occurrence: US)
  Receive Date: 20130410
  Receipt Date: 20130410
  Transmission Date: 20140414
  Serious: No
  Sender: FDA-Public Use
  Company Number: US-009507513-1304USA003810

PATIENT
  Sex: Female

DRUGS (5)
  1. ZETIA [Suspect]
     Indication: PRODUCT USED FOR UNKNOWN INDICATION
     Dosage: UNK
  2. REVLIMID [Suspect]
     Indication: PLASMA CELL MYELOMA
     Dosage: 25 MG, QD
     Route: 048
     Dates: start: 200912, end: 2010
  3. REVLIMID [Suspect]
     Dosage: 15 MG, QD
     Route: 048
     Dates: start: 201002, end: 2010
  4. REVLIMID [Suspect]
     Dosage: 10 MG, QD
     Route: 048
     Dates: start: 201004, end: 2010
  5. REVLIMID [Suspect]
     Dosage: 10 MG, QD
     Route: 048
     Dates: start: 20101217

REACTIONS (1)
  - Diarrhoea [Unknown]
